FAERS Safety Report 6571750-6 (Version None)
Quarter: 2010Q1

REPORT INFORMATION
  Report Type: 
  Country: None (occurrence: None)
  Receive Date: 20100205
  Receipt Date: 20100127
  Transmission Date: 20100710
  Serious: Yes (Other)
  Sender: FDA-Public Use
  Company Number: FR-ASTRAZENECA-2010SE03926

PATIENT
  Age: 34 Year
  Sex: Male

DRUGS (5)
  1. OMEPRAZOLE [Suspect]
     Route: 048
  2. CYCLOSPORINE [Suspect]
     Indication: NEPHROTIC SYNDROME
     Route: 048
     Dates: start: 20070701, end: 20081201
  3. TAHOR [Suspect]
     Route: 048
  4. TRIATEC [Suspect]
     Indication: HYPERTENSION
     Route: 048
  5. SPECIAFOLDINE [Concomitant]
     Route: 048

REACTIONS (1)
  - HYPOSPERMIA [None]
